FAERS Safety Report 9936923 (Version 1)
Quarter: 2014Q1

REPORT INFORMATION
  Report Type: Spontaneous
  Country: US (occurrence: None)
  Receive Date: 20140115
  Receipt Date: 20140115
  Transmission Date: 20141002
  Serious: Yes (Hospitalization)
  Sender: FDA-Public Use
  Company Number: 2013US002607

PATIENT
  Age: 42 Year
  Sex: Female

DRUGS (10)
  1. ICLUSIG (PONATINIB) TABLET, 45MG [Suspect]
     Indication: CHROMOSOME ANALYSIS ABNORMAL
     Route: 048
     Dates: start: 20130201
  2. ICLUSIG (PONATINIB) TABLET, 45MG [Suspect]
     Indication: ACUTE LYMPHOCYTIC LEUKAEMIA
     Route: 048
     Dates: start: 20130201
  3. CIPRO (CIPROFLOXACIN) [Concomitant]
  4. LYRICA ((PREGABALIN) [Concomitant]
  5. FLUCONAZOLE (FLUCONAZOLE) [Concomitant]
  6. VALTREX (VALACICLOVIR HYDROCHLORIDE) [Concomitant]
  7. CYCLOPHOSPHAMIDE (CYCLOPHOSPHAMIDE) [Concomitant]
  8. VINCRISTINE (VINCRISTINE) [Concomitant]
  9. DOXORUBICIN (DOXORUBICIN) [Concomitant]
  10. DEXAMTHASONE (DEXAMETHASONE) [Concomitant]

REACTIONS (1)
  - Pyrexia [None]
